FAERS Safety Report 8439147 (Version 2)
Quarter: 2013Q2

REPORT INFORMATION
  Report Type: Spontaneous
  Country: US (occurrence: None)
  Receive Date: 20120104
  Receipt Date: 20120508
  Transmission Date: 20140414
  Serious: Yes (Hospitalization)
  Sender: FDA-Public Use
  Company Number: 2011HGS-002740

PATIENT
  Age: 41 Year
  Sex: Female
  Weight: 95.71 kg

DRUGS (5)
  1. BENLYSTA [Suspect]
     Indication: SYSTEMIC LUPUS ERYTHEMATOSUS
     Route: 041
     Dates: start: 20110801, end: 20110801
  2. STEROIDS (STEROIDS) [Concomitant]
  3. PLAQUENIL (HYDROXYCHLOROQUINE SULFATE) (HYDROXYCHLOROQUINE SULFATE) [Concomitant]
  4. PREDNISONE (PREDNISONE) (PREDNISONE) [Concomitant]
  5. ASA (ACETYLSALICYLIC ACID) (ACETYLSALICYLIC ACID) [Concomitant]

REACTIONS (5)
  - HYPERSENSITIVITY [None]
  - OXYGEN SATURATION DECREASED [None]
  - DYSPNOEA [None]
  - HYPOTENSION [None]
  - Drug hypersensitivity [None]
